FAERS Safety Report 5856119-1 (Version None)
Quarter: 2008Q3

REPORT INFORMATION
  Report Type: 
  Country: None (occurrence: None)
  Receive Date: 20080821
  Receipt Date: 20080821
  Transmission Date: 20090109
  Serious: No
  Sender: FDA-Public Use
  Company Number: None

PATIENT
  Age: 59 Year
  Sex: Male
  Weight: 80.5 kg

DRUGS (3)
  1. LORAZEPAM [Suspect]
     Indication: AGITATION
     Dosage: 2 MG PRN PO
     Route: 048
     Dates: start: 20080714, end: 20080714
  2. LORAZEPAM [Suspect]
     Indication: ALCOHOL WITHDRAWAL SYNDROME
     Dosage: 2 MG PRN PO
     Route: 048
     Dates: start: 20080714, end: 20080714
  3. HALOPERIDOL [Suspect]
     Indication: AGITATION
     Dosage: 5 MG ONCE IM
     Route: 030
     Dates: start: 20080714, end: 20080714

REACTIONS (5)
  - COUGH [None]
  - FOAMING AT MOUTH [None]
  - SEDATION [None]
  - TACHYCARDIA [None]
  - TACHYPNOEA [None]
